FAERS Safety Report 11804326 (Version 1)
Quarter: 2015Q4

REPORT INFORMATION
  Report Type: Spontaneous
  Country: GB (occurrence: GB)
  Receive Date: 20151204
  Receipt Date: 20151204
  Transmission Date: 20160305
  Serious: Yes (Other)
  Sender: FDA-Public Use
  Company Number: GB-TEVA-612943ACC

PATIENT
  Age: 89 Year
  Sex: Female
  Weight: 67 kg

DRUGS (16)
  1. IBUPROFEN. [Concomitant]
     Active Substance: IBUPROFEN
     Dosage: ASD
     Dates: start: 20140325
  2. SENNA [Concomitant]
     Active Substance: SENNA LEAF\SENNOSIDES\SENNOSIDES A AND B
     Dosage: 2-4 AT NIGHT.
     Dates: start: 20120628
  3. LOSARTAN. [Concomitant]
     Active Substance: LOSARTAN
     Dosage: 1 DOSAGE FORMS DAILY;
     Dates: start: 20140325
  4. OMEPRAZOLE. [Concomitant]
     Active Substance: OMEPRAZOLE
     Dosage: 1 DOSAGE FORMS DAILY;
     Dates: start: 20150217
  5. ACIDEX [Concomitant]
     Active Substance: CALCIUM CARBONATE\SODIUM ALGINATE\SODIUM BICARBONATE
     Dosage: 40 ML DAILY; 2X5ML SPOON 4 TIMES A DAY AS REQUIRED.
     Dates: start: 20151017, end: 20151029
  6. ADCAL [Concomitant]
     Dosage: 4 DOSAGE FORMS DAILY;
     Dates: start: 20150121
  7. RISEDRONATE SODIUM. [Concomitant]
     Active Substance: RISEDRONATE SODIUM
     Dates: start: 20150818
  8. ASPIRIN. [Concomitant]
     Active Substance: ASPIRIN
     Dosage: 1 DOSAGE FORMS DAILY;
     Dates: start: 20100301
  9. PARACETAMOL [Concomitant]
     Active Substance: ACETAMINOPHEN
     Dosage: TAKE 1 OR 2, 4 TIMES A DAY.
     Dates: start: 20140325
  10. SODIUM ALGINATE [Concomitant]
     Active Substance: SODIUM ALGINATE
     Dosage: 5ML-10ML 4 TIMES A DAY
     Dates: start: 20150825, end: 20150924
  11. DILTIAZEM [Concomitant]
     Active Substance: DILTIAZEM
     Dosage: 3 DOSAGE FORMS DAILY;
     Dates: start: 20150702
  12. OXYBUTYNIN [Concomitant]
     Active Substance: OXYBUTYNIN
     Dosage: 1 DOSAGE FORMS DAILY;
     Dates: start: 20140812
  13. AMOXICILLIN. [Concomitant]
     Active Substance: AMOXICILLIN
     Dosage: 3 DOSAGE FORMS DAILY;
     Dates: start: 20151110, end: 20151115
  14. ATORVASTATIN [Concomitant]
     Active Substance: ATORVASTATIN
     Dosage: 1 DOSAGE FORMS DAILY; AT NIGHT.
     Dates: start: 20110211
  15. TRIMETHOPRIM. [Suspect]
     Active Substance: TRIMETHOPRIM
     Dates: start: 20150721
  16. LATANOPROST. [Concomitant]
     Active Substance: LATANOPROST
     Dosage: 1 DOSAGE FORMS DAILY; ONE DROP ONCE AT NIGHT.
     Dates: start: 20140401

REACTIONS (2)
  - Oral mucosal blistering [Recovered/Resolved]
  - Lip blister [Recovered/Resolved]

NARRATIVE: CASE EVENT DATE: 20151115
